FAERS Safety Report 19467364 (Version 1)
Quarter: 2021Q2

REPORT INFORMATION
  Report Type: Spontaneous
  Country: US (occurrence: US)
  Receive Date: 20210627
  Receipt Date: 20210627
  Transmission Date: 20210717
  Serious: Yes (Disabling)
  Sender: FDA-Public Use
  Company Number: None

PATIENT
  Age: 27 Year
  Sex: Male
  Weight: 74.25 kg

DRUGS (2)
  1. MINOXIDIL. [Concomitant]
     Active Substance: MINOXIDIL
  2. PROPECIA [Suspect]
     Active Substance: FINASTERIDE
     Indication: ALOPECIA
     Dosage: ?          QUANTITY:10 TABLET(S);?
     Route: 048
     Dates: start: 20101110, end: 20101120

REACTIONS (13)
  - Anhedonia [None]
  - Dysarthria [None]
  - Anxiety [None]
  - Memory impairment [None]
  - Panic attack [None]
  - Disturbance in attention [None]
  - Fatigue [None]
  - Genital hypoaesthesia [None]
  - Libido decreased [None]
  - Constipation [None]
  - Personality change [None]
  - Feeling abnormal [None]
  - Dry skin [None]

NARRATIVE: CASE EVENT DATE: 20101120
